FAERS Safety Report 24700363 (Version 1)
Quarter: 2024Q4

REPORT INFORMATION
  Report Type: Spontaneous
  Country: US (occurrence: US)
  Receive Date: 20241205
  Receipt Date: 20241205
  Transmission Date: 20250114
  Serious: Yes (Death)
  Sender: PROCTER AND GAMBLE
  Company Number: US-PROCTER+GAMBLE-PH24009074

PATIENT
  Age: 34 Year
  Sex: Male

DRUGS (12)
  1. DEXTROMETHORPHAN [Suspect]
     Active Substance: DEXTROMETHORPHAN
     Dosage: UNK
  2. FENTANYL [Suspect]
     Active Substance: FENTANYL
     Dosage: FENTANYL WITH CORRESPONDING METABOLITES
  3. METHAMPHETAMINE [Suspect]
     Active Substance: METHAMPHETAMINE
     Dosage: FENTANYL WITH CORRESPONDING METABOLITES
  4. LEVORPHANOL [Suspect]
     Active Substance: LEVORPHANOL
     Dosage: UNK
  5. NALOXONE [Suspect]
     Active Substance: NALOXONE
     Dosage: UNK
  6. BENZOYLECGONINE [Suspect]
     Active Substance: BENZOYLECGONINE
     Dosage: UNK
  7. HERBALS\TETRAHYDROCANNABINOL UNSPECIFIED [Suspect]
     Active Substance: HERBALS\TETRAHYDROCANNABINOL UNSPECIFIED
     Dosage: TETRAHYDROCANNABINOL WITH CORRESPONDING METABOLITES
  8. .DELTA.9-TETRAHYDROCANNABINOLIC ACID\HERBALS [Suspect]
     Active Substance: .DELTA.9-TETRAHYDROCANNABINOLIC ACID\HERBALS
     Dosage: UNK
  9. DEXTRORPHAN [Suspect]
     Active Substance: DEXTRORPHAN
     Dosage: UNK
  10. LEVOMETHORPHAN [Suspect]
     Active Substance: LEVOMETHORPHAN
     Dosage: UNK
  11. UNSPECIFIED INGREDIENT [Suspect]
     Active Substance: UNSPECIFIED INGREDIENT
     Dosage: UNK
  12. DEPROPIONYLFENTANYL [Suspect]
     Active Substance: DEPROPIONYLFENTANYL
     Dosage: UNK

REACTIONS (2)
  - Toxicity to various agents [Fatal]
  - Accidental overdose [Fatal]

NARRATIVE: CASE EVENT DATE: 20240501
